FAERS Safety Report 5944563-3 (Version None)
Quarter: 2008Q4

REPORT INFORMATION
  Report Type: 
  Country: None (occurrence: None)
  Receive Date: 20081105
  Receipt Date: 20081027
  Transmission Date: 20090506
  Serious: Yes (Other)
  Sender: FDA-Public Use
  Company Number: 2008AP002927

PATIENT
  Age: 32 Year
  Sex: Female

DRUGS (6)
  1. METFORMIN HCL [Suspect]
     Indication: DIABETES MELLITUS
     Dosage: 500 MG;BID;PO
     Route: 048
     Dates: end: 20081010
  2. METFORMIN HCL [Suspect]
     Indication: DIABETES MELLITUS
     Dosage: 500 MG;BID;PO
     Route: 048
     Dates: start: 20081027
  3. QUETIAPINE FUMARATE [Concomitant]
  4. CLONAZEPAM [Concomitant]
  5. BUPROPION HYDROCHLORIDE [Concomitant]
  6. ATENOLOL [Concomitant]

REACTIONS (5)
  - BLOOD GLUCOSE INCREASED [None]
  - DYSPNOEA [None]
  - HYPOAESTHESIA ORAL [None]
  - PARAESTHESIA [None]
  - SWOLLEN TONGUE [None]
